FAERS Safety Report 19066856 (Version 1)
Quarter: 2021Q1

REPORT INFORMATION
  Report Type: Spontaneous
  Country: US (occurrence: US)
  Receive Date: 20210329
  Receipt Date: 20210329
  Transmission Date: 20210420
  Serious: No
  Sender: FDA-Public Use
  Company Number: US-AUROBINDO-AUR-APL-2020-030425

PATIENT
  Age: 76 Year
  Sex: Female
  Weight: 74.8 kg

DRUGS (2)
  1. SERTRALINE HYDROCHLORIDE TABLETS 25MG [Suspect]
     Active Substance: SERTRALINE HYDROCHLORIDE
     Indication: PRODUCT USED FOR UNKNOWN INDICATION
     Dosage: 1 DOSAGE FORM, DAILY
     Route: 065
  2. SERTRALINE HYDROCHLORIDE TABLETS 25MG [Suspect]
     Active Substance: SERTRALINE HYDROCHLORIDE
     Dosage: 2 DOSAGE FORM, DAILY
     Route: 065

REACTIONS (3)
  - Illness [Recovered/Resolved]
  - Nausea [Recovered/Resolved]
  - Cold-stimulus headache [Recovered/Resolved]
